FAERS Safety Report 6219977-7 (Version None)
Quarter: 2009Q2

REPORT INFORMATION
  Report Type: 
  Country: None (occurrence: None)
  Receive Date: 20090609
  Receipt Date: 20090603
  Transmission Date: 20091009
  Serious: Yes (Other)
  Sender: FDA-Public Use
  Company Number: US-ASTRAZENECA-2009UW14167

PATIENT
  Age: 87 Year
  Sex: Female
  Weight: 55.8 kg

DRUGS (8)
  1. ARIMIDEX [Suspect]
     Indication: BREAST CANCER
     Route: 048
     Dates: start: 20030101, end: 20081201
  2. ARIMIDEX [Suspect]
     Route: 048
     Dates: start: 20090501
  3. ZOMETA [Concomitant]
  4. ASA BABY [Concomitant]
  5. THYROID TAB [Concomitant]
  6. LIPITOR [Concomitant]
  7. ADVAIR HFA [Concomitant]
     Indication: POSTNASAL DRIP
  8. FLONASE [Concomitant]
     Indication: POSTNASAL DRIP

REACTIONS (4)
  - BONE DISORDER [None]
  - COLON CANCER [None]
  - INFECTION [None]
  - SURGERY [None]
